FAERS Safety Report 5687792-9 (Version None)
Quarter: 2008Q1

REPORT INFORMATION
  Report Type: 
  Country: None (occurrence: None)
  Receive Date: 20080328
  Receipt Date: 20061120
  Transmission Date: 20080703
  Serious: No
  Sender: FDA-Public Use
  Company Number: US-BAYER-US-2006-036019

PATIENT
  Age: 37 Year
  Sex: Female
  Weight: 51 kg

DRUGS (4)
  1. MIRENA [Suspect]
     Indication: CONTRACEPTION
     Route: 015
     Dates: start: 20060901
  2. TOPAMAX [Concomitant]
     Indication: MIGRAINE
     Route: 048
  3. EFFEXOR XR [Concomitant]
     Indication: MIGRAINE
     Route: 048
  4. TRAZODONE HCL [Concomitant]
     Indication: SLEEP DISORDER
     Route: 048

REACTIONS (3)
  - ANORECTAL DISORDER [None]
  - GENITAL LESION [None]
  - GENITAL RASH [None]
